FAERS Safety Report 8429249-8 (Version None)
Quarter: 2012Q2

REPORT INFORMATION
  Report Type: 
  Country: None (occurrence: None)
  Receive Date: 20120612
  Receipt Date: 20120606
  Transmission Date: 20120825
  Serious: Yes (Other)
  Sender: FDA-Public Use
  Company Number: PHHY2012MX049323

PATIENT
  Sex: Female

DRUGS (4)
  1. ZOLEDRONOC ACID [Suspect]
     Indication: OSTEOPOROSIS
     Dosage: 5 MG/100ML
     Route: 042
     Dates: start: 20110601
  2. IMURAN [Concomitant]
     Dosage: 1 DF, DAILY
     Dates: start: 20110601
  3. MESALAMINE [Concomitant]
     Dosage: 2 DF DAILY
     Route: 048
     Dates: start: 20100601
  4. DEXLANSOPRAZOLE [Concomitant]
     Dosage: 2 DF, DAILY
     Dates: start: 20120301

REACTIONS (5)
  - WRONG TECHNIQUE IN DRUG USAGE PROCESS [None]
  - VIRAL INFECTION [None]
  - OEDEMA PERIPHERAL [None]
  - PAIN [None]
  - MUSCULOSKELETAL STIFFNESS [None]
